FAERS Safety Report 10467909 (Version 2)
Quarter: 2015Q2

REPORT INFORMATION
  Report Type: Spontaneous
  Country: FR (occurrence: FR)
  Receive Date: 20140922
  Receipt Date: 20150603
  Transmission Date: 20150821
  Serious: Yes (Hospitalization, Other)
  Sender: FDA-Public Use
  Company Number: FR-PFIZER INC-2014256607

PATIENT
  Age: 43 Year
  Sex: Female

DRUGS (2)
  1. TETRALYSAL [Suspect]
     Active Substance: LYMECYCLINE
     Indication: LUNG INFECTION
     Dosage: UNK
     Route: 048
     Dates: start: 201406, end: 2014
  2. ZITHROMAX [Suspect]
     Active Substance: AZITHROMYCIN DIHYDRATE
     Indication: LUNG INFECTION
     Dosage: UNK
     Route: 048
     Dates: start: 201406, end: 2014

REACTIONS (4)
  - Hepatic failure [Recovering/Resolving]
  - Hepatitis [Recovering/Resolving]
  - Drug reaction with eosinophilia and systemic symptoms [Recovering/Resolving]
  - Jaundice cholestatic [Recovering/Resolving]

NARRATIVE: CASE EVENT DATE: 20140713
